FAERS Safety Report 4727329-1 (Version None)
Quarter: 2005Q3

REPORT INFORMATION
  Report Type: 
  Country: None (occurrence: None)
  Receive Date: 20050727
  Receipt Date: 20050727
  Transmission Date: 20060218
  Serious: No
  Sender: FDA-Public Use
  Company Number: None

PATIENT
  Age: 55 Year
  Sex: Male
  Weight: 110.6 kg

DRUGS (17)
  1. LISINOPRIL [Suspect]
     Indication: HYPERTENSION
     Dosage: 40 MG, 40 MG QD, ORAL
     Route: 048
  2. ASPIRIN [Concomitant]
  3. GLYBURIDE [Concomitant]
  4. BENZTROPINE MESYLATE [Concomitant]
  5. HALOPERIDOL [Concomitant]
  6. TRAZODONE HCL [Concomitant]
  7. SILDENAFIL CITRATE [Concomitant]
  8. DIPHENHYDRAMINE HCL [Concomitant]
  9. NYSTATIN [Concomitant]
  10. RANITIDINE HCL [Concomitant]
  11. HYDROCHLOROTHIAZIDE [Concomitant]
  12. RISPERIDONE [Concomitant]
  13. INSULIN NPH HUMAN/NOVOLIN N [Concomitant]
  14. IRBESARTAN [Concomitant]
  15. METOPROLOL TARTRATE [Concomitant]
  16. NITROGLYCERIN [Concomitant]
  17. LISINOPRIL [Concomitant]

REACTIONS (1)
  - OEDEMA [None]
